FAERS Safety Report 13529621 (Version 1)
Quarter: 2017Q2

REPORT INFORMATION
  Report Type: Spontaneous
  Country: US (occurrence: US)
  Receive Date: 20170509
  Receipt Date: 20170509
  Transmission Date: 20170830
  Serious: No
  Sender: FDA-Public Use
  Company Number: US-ROCHE-GNE295738

PATIENT
  Age: 62 Year
  Sex: Female
  Weight: 103.11 kg

DRUGS (1)
  1. XOLAIR [Suspect]
     Active Substance: OMALIZUMAB
     Indication: PRODUCT USED FOR UNKNOWN INDICATION
     Dosage: UNK
     Route: 065
     Dates: start: 20091104

REACTIONS (2)
  - Dysgeusia [Not Recovered/Not Resolved]
  - Peripheral swelling [None]

NARRATIVE: CASE EVENT DATE: 20091204
